FAERS Safety Report 4878851-9 (Version None)
Quarter: 2006Q1

REPORT INFORMATION
  Report Type: 
  Country: None (occurrence: None)
  Receive Date: 20060112
  Receipt Date: 20060109
  Transmission Date: 20060701
  Serious: Yes (Hospitalization)
  Sender: FDA-Public Use
  Company Number: BE-GLAXOSMITHKLINE-B0406175A

PATIENT
  Age: 19 Year
  Sex: Female

DRUGS (2)
  1. ZANTAC [Suspect]
     Indication: DRUG USE FOR UNKNOWN INDICATION
     Dosage: 900MG SEE DOSAGE TEXT
     Route: 048
  2. ZURCALE [Suspect]
     Indication: DRUG USE FOR UNKNOWN INDICATION
     Dosage: 12TAB SEE DOSAGE TEXT
     Route: 048

REACTIONS (4)
  - CONFUSIONAL STATE [None]
  - HYPERVENTILATION [None]
  - INTENTIONAL OVERDOSE [None]
  - SUICIDE ATTEMPT [None]
